FAERS Safety Report 5338498-7 (Version None)
Quarter: 2007Q2

REPORT INFORMATION
  Report Type: 
  Country: None (occurrence: None)
  Receive Date: 20070405
  Receipt Date: 20061108
  Transmission Date: 20071010
  Serious: No
  Sender: FDA-Public Use
  Company Number: US200611002144

PATIENT
  Age: 40 Year
  Sex: Female

DRUGS (3)
  1. CYMBALTA [Suspect]
     Indication: DEPRESSION
     Dosage: 60 MG, ORAL
     Route: 048
     Dates: start: 20050701, end: 20050905
  2. AMBIEN [Concomitant]
  3. ALPRAZOLAM [Concomitant]

REACTIONS (1)
  - MEMORY IMPAIRMENT [None]
